FAERS Safety Report 22393049 (Version 1)
Quarter: 2023Q2

REPORT INFORMATION
  Report Type: Spontaneous
  Country: US (occurrence: None)
  Receive Date: 20230531
  Receipt Date: 20230531
  Transmission Date: 20230722
  Serious: No
  Sender: FDA-Public Use
  Company Number: None

PATIENT
  Age: 39 Year
  Sex: Female
  Weight: 65.25 kg

DRUGS (2)
  1. ACETIC ACID\HYDROCORTISONE [Suspect]
     Active Substance: ACETIC ACID\HYDROCORTISONE
     Indication: Tympanic membrane disorder
     Dosage: OTHER QUANTITY : 1 DROP(S);?FREQUENCY : TWICE A DAY;?
     Route: 001
     Dates: start: 20230401, end: 20230501
  2. ACETIC ACID\HYDROCORTISONE [Suspect]
     Active Substance: ACETIC ACID\HYDROCORTISONE
     Indication: Inflammation

REACTIONS (1)
  - Dizziness [None]

NARRATIVE: CASE EVENT DATE: 20230501
